FAERS Safety Report 5952592-9 (Version None)
Quarter: 2008Q4

REPORT INFORMATION
  Report Type: 
  Country: None (occurrence: None)
  Receive Date: 20081031
  Receipt Date: 20080301
  Transmission Date: 20090506
  Serious: Yes (Other)
  Sender: FDA-Public Use
  Company Number: US022778

PATIENT
  Age: 79 Year
  Sex: Female
  Weight: 78.0187 kg

DRUGS (4)
  1. PROVIGIL [Suspect]
     Indication: HYPERSOMNIA
     Dosage: 200 MG QD ORAL
     Route: 048
     Dates: start: 20050101
  2. RYTHMOL [Concomitant]
  3. NEXIUM [Concomitant]
  4. ALLEGRA [Concomitant]

REACTIONS (3)
  - DIZZINESS [None]
  - NAUSEA [None]
  - PALPITATIONS [None]
